FAERS Safety Report 9478999 (Version 1)
Quarter: 2013Q3

REPORT INFORMATION
  Report Type: Spontaneous
  Country: IT (occurrence: None)
  Receive Date: 20130822
  Receipt Date: 20130822
  Transmission Date: 20140515
  Serious: Yes (Life-Threatening, Hospitalization)
  Sender: FDA-Public Use
  Company Number: NSR_01217_2013

PATIENT
  Age: 31 Year
  Sex: Male

DRUGS (5)
  1. ALLOPURINOL [Suspect]
     Indication: HYPERURICAEMIA
     Dosage: 2 WEEKS UNTIL NOT CONTINUING
  2. RIFAMPICIN [Concomitant]
  3. ISONIAZID [Concomitant]
  4. ETHAMBUTOL [Concomitant]
  5. PYRAZINAMIDE [Concomitant]

REACTIONS (5)
  - Hemiplegia [None]
  - Hyperpyrexia [None]
  - Coma [None]
  - Vasculitis cerebral [None]
  - Drug reaction with eosinophilia and systemic symptoms [None]
